FAERS Safety Report 5768182-7 (Version None)
Quarter: 2008Q2

REPORT INFORMATION
  Report Type: 
  Country: None (occurrence: None)
  Receive Date: 20080609
  Receipt Date: 20080208
  Transmission Date: 20081010
  Serious: Yes (Hospitalization)
  Sender: FDA-Public Use
  Company Number: 2008BI003402

PATIENT
  Age: 31 Year
  Sex: Female

DRUGS (4)
  1. TYSABRI [Suspect]
     Indication: RELAPSING-REMITTING MULTIPLE SCLEROSIS
     Dosage: 300 MG;QM;IV
     Route: 042
     Dates: start: 20071107, end: 20080206
  2. AVONEX [Concomitant]
  3. REBIF [Concomitant]
  4. COPAXONE [Concomitant]

REACTIONS (14)
  - ALLERGY TO METALS [None]
  - DERMATITIS ALLERGIC [None]
  - DEVICE RELATED INFECTION [None]
  - DIZZINESS [None]
  - FOOD ALLERGY [None]
  - GENERAL PHYSICAL HEALTH DETERIORATION [None]
  - LYMPHOCYTE COUNT DECREASED [None]
  - MOTOR DYSFUNCTION [None]
  - MULTIPLE SCLEROSIS RELAPSE [None]
  - NAUSEA [None]
  - OPTIC NEURITIS [None]
  - POLYDIPSIA [None]
  - POLYURIA [None]
  - PYREXIA [None]
